FAERS Safety Report 8473534-0 (Version None)
Quarter: 2012Q2

REPORT INFORMATION
  Report Type: 
  Country: None (occurrence: None)
  Receive Date: 20120622
  Receipt Date: 20120622
  Transmission Date: 20120825
  Serious: Yes (Hospitalization)
  Sender: FDA-Public Use
  Company Number: None

PATIENT
  Sex: Male
  Weight: 81.4 kg

DRUGS (3)
  1. TAXOL [Suspect]
     Dosage: 402 MG
  2. BEVACIZUMAB [Suspect]
     Dosage: 1283 MG
  3. CARBOPLATIN [Suspect]
     Dosage: 627 MG

REACTIONS (4)
  - ARTERIAL RUPTURE [None]
  - PULMONARY HAEMORRHAGE [None]
  - VENOUS VALVE RUPTURED [None]
  - LOSS OF CONSCIOUSNESS [None]
